FAERS Safety Report 6541645-2 (Version None)
Quarter: 2010Q1

REPORT INFORMATION
  Report Type: 
  Country: None (occurrence: None)
  Receive Date: 20100119
  Receipt Date: 20100104
  Transmission Date: 20100710
  Serious: Yes (Disabling)
  Sender: FDA-Public Use
  Company Number: AU-MYLANLABS-2010S1000103

PATIENT
  Age: 70 Year
  Sex: Female

DRUGS (10)
  1. BEVACIZUMAB [Suspect]
     Indication: NON-SMALL CELL LUNG CANCER METASTATIC
     Route: 042
  2. INVESTIGATIONAL DRUG [Suspect]
     Indication: NON-SMALL CELL LUNG CANCER METASTATIC
     Route: 065
  3. CARBOPLATIN [Suspect]
     Indication: NON-SMALL CELL LUNG CANCER METASTATIC
     Route: 065
  4. PACLITAXEL [Suspect]
     Indication: NON-SMALL CELL LUNG CANCER METASTATIC
     Route: 065
  5. CARBAMAZEPINE [Concomitant]
     Route: 065
  6. FELODIPINE [Concomitant]
     Route: 065
  7. PERINDOPRIL [Concomitant]
     Route: 065
  8. OMEPRAZOLE [Concomitant]
     Route: 065
  9. LEVOTHYROXINE SODIUM [Concomitant]
     Route: 065
  10. ALBUTEROL [Concomitant]
     Route: 065

REACTIONS (2)
  - HYPERTENSION [None]
  - SPINAL CORD INFARCTION [None]
